FAERS Safety Report 5667364-2 (Version None)
Quarter: 2008Q1

REPORT INFORMATION
  Report Type: 
  Country: None (occurrence: None)
  Receive Date: 20080315
  Receipt Date: 20080121
  Transmission Date: 20080703
  Serious: No
  Sender: FDA-Public Use
  Company Number: US-ABBOTT-08P-163-0434633-00

PATIENT
  Sex: Female
  Weight: 55.388 kg

DRUGS (12)
  1. HUMIRA [Suspect]
     Indication: CROHN'S DISEASE
     Route: 058
     Dates: start: 20080115
  2. HUMIRA [Suspect]
     Route: 058
     Dates: start: 20071218, end: 20071218
  3. HUMIRA [Suspect]
     Route: 058
     Dates: start: 20080101, end: 20080101
  4. NEPROXEN EC [Concomitant]
     Indication: PAIN
     Route: 048
  5. ANOVLAR [Concomitant]
     Indication: CONTRACEPTION
     Route: 048
  6. AZATHIOPRINE [Concomitant]
     Indication: CROHN'S DISEASE
     Route: 048
  7. PREDNISONE [Concomitant]
     Indication: CROHN'S DISEASE
     Route: 048
  8. ZOLPIDEM TARTRATE [Concomitant]
     Indication: INSOMNIA
     Route: 048
  9. ADDAROL [Concomitant]
     Indication: ATTENTION DEFICIT/HYPERACTIVITY DISORDER
     Route: 048
  10. RANITIDINE HYDROCHLORIDE [Concomitant]
     Indication: GASTROOESOPHAGEAL REFLUX DISEASE
     Route: 048
  11. VALIUM [Concomitant]
     Indication: ANXIETY
     Route: 048
  12. MULTI-VITAMIN [Concomitant]
     Indication: VITAMIN SUPPLEMENTATION
     Route: 048

REACTIONS (1)
  - NAUSEA [None]
